FAERS Safety Report 20966765 (Version 1)
Quarter: 2022Q2

REPORT INFORMATION
  Report Type: Spontaneous
  Country: CA (occurrence: CA)
  Receive Date: 20220616
  Receipt Date: 20220616
  Transmission Date: 20220720
  Serious: Yes (Hospitalization)
  Sender: FDA-Public Use
  Company Number: None

PATIENT
  Sex: Female
  Weight: 2 kg

DRUGS (3)
  1. FLUOXETINE [Suspect]
     Active Substance: FLUOXETINE HYDROCHLORIDE
     Indication: Product used for unknown indication
     Dosage: 1 EVERY 1 DAYS
     Route: 064
  2. QUETIAPINE [Suspect]
     Active Substance: QUETIAPINE
     Indication: Product used for unknown indication
     Dosage: 1 EVERY 1 DAYS
     Route: 064
  3. ASPIRIN [Concomitant]
     Active Substance: ASPIRIN
     Route: 064

REACTIONS (4)
  - Dyskinesia [Recovered/Resolved]
  - Foetal exposure timing unspecified [Unknown]
  - Neonatal behavioural syndrome [Recovered/Resolved]
  - Poisoning [Recovered/Resolved]
